FAERS Safety Report 10705933 (Version 1)
Quarter: 2015Q1

REPORT INFORMATION
  Report Type: Spontaneous
  Country: TR (occurrence: TR)
  Receive Date: 20150113
  Receipt Date: 20150113
  Transmission Date: 20150721
  Serious: Yes (Other)
  Sender: FDA-Public Use
  Company Number: PHHY2015TR001674

PATIENT
  Age: 43 Year
  Sex: Female

DRUGS (3)
  1. NUROFEN COLD AND FLU TABLET [Concomitant]
     Indication: TONSILLITIS
     Route: 048
     Dates: start: 20150104, end: 20150104
  2. OSPEN [Suspect]
     Active Substance: PENICILLIN V
     Indication: TONSILLITIS
     Dosage: 1000000 IU, BID
     Route: 048
     Dates: start: 20150104
  3. LODINE [Concomitant]
     Active Substance: ETODOLAC
     Indication: TONSILLITIS
     Dosage: 300 MG, ONCE/SINGLE
     Route: 048
     Dates: start: 20150104, end: 20150104

REACTIONS (8)
  - Bradycardia [Recovered/Resolved]
  - Skin discolouration [Recovered/Resolved]
  - Chest discomfort [Recovered/Resolved]
  - Muscle tightness [Recovered/Resolved]
  - Dizziness [Recovered/Resolved]
  - Anger [Recovered/Resolved]
  - Dyspnoea [Recovered/Resolved]
  - Nausea [Recovered/Resolved]

NARRATIVE: CASE EVENT DATE: 20150104
